FAERS Safety Report 17597644 (Version 1)
Quarter: 2020Q1

REPORT INFORMATION
  Report Type: Spontaneous
  Country: CA (occurrence: CA)
  Receive Date: 20200330
  Receipt Date: 20200330
  Transmission Date: 20200409
  Serious: Yes (Hospitalization, Other)
  Sender: FDA-Public Use
  Company Number: NVSC2020CA085157

PATIENT
  Age: 2 Day
  Sex: Male

DRUGS (9)
  1. BUPRENORPHINE. [Suspect]
     Active Substance: BUPRENORPHINE
     Dosage: UNK
     Route: 064
  2. ONDANSETRON HYDROCHLORIDE DIHYDRATE INJECTION [Suspect]
     Active Substance: ONDANSETRON HYDROCHLORIDE
     Indication: FOETAL EXPOSURE DURING PREGNANCY
     Dosage: UNK
     Route: 064
  3. TRAZODONE [Suspect]
     Active Substance: TRAZODONE HYDROCHLORIDE
     Indication: FOETAL EXPOSURE DURING PREGNANCY
     Dosage: UNK
     Route: 064
  4. BUPRENORPHINE. [Suspect]
     Active Substance: BUPRENORPHINE
     Indication: FOETAL EXPOSURE DURING PREGNANCY
     Dosage: MATERNAL DOSE: 12 DF, QD
     Route: 064
  5. NICOTINE. [Suspect]
     Active Substance: NICOTINE
     Indication: EXPOSURE VIA BREAST MILK
  6. TRAZODONE [Suspect]
     Active Substance: TRAZODONE HYDROCHLORIDE
     Indication: EXPOSURE VIA BREAST MILK
  7. ONDANSETRON HYDROCHLORIDE DIHYDRATE INJECTION [Suspect]
     Active Substance: ONDANSETRON HYDROCHLORIDE
     Indication: EXPOSURE VIA BREAST MILK
  8. BUPRENORPHINE. [Suspect]
     Active Substance: BUPRENORPHINE
     Indication: EXPOSURE VIA BREAST MILK
     Dosage: UNK
     Route: 064
  9. NICOTINE. [Suspect]
     Active Substance: NICOTINE
     Indication: FOETAL EXPOSURE DURING PREGNANCY
     Dosage: MATERNAL DOSE: 15 DF, QD
     Route: 064

REACTIONS (4)
  - Poor feeding infant [Recovered/Resolved]
  - Drug withdrawal syndrome neonatal [Recovered/Resolved]
  - Exposure via breast milk [Recovered/Resolved]
  - Foetal exposure during pregnancy [Recovered/Resolved]
